FAERS Safety Report 24712613 (Version 2)
Quarter: 2025Q1

REPORT INFORMATION
  Report Type: Spontaneous
  Country: US (occurrence: US)
  Receive Date: 20241209
  Receipt Date: 20250128
  Transmission Date: 20250409
  Serious: Yes (Hospitalization, Other)
  Sender: PFIZER
  Company Number: US-PFIZER INC-PV202400159190

PATIENT
  Age: 70 Year
  Sex: Female
  Weight: 61.224 kg

DRUGS (8)
  1. PREMARIN [Suspect]
     Active Substance: ESTROGENS, CONJUGATED
     Indication: Hormone replacement therapy
     Dosage: 0.3 MG, ALTERNATE DAY (FREQUENCY: OTHER: M-W-F)
     Route: 048
     Dates: start: 19831130
  2. ATORVASTATIN [Concomitant]
     Active Substance: ATORVASTATIN
     Indication: Blood cholesterol increased
     Dosage: DOSE: 20, UNIT: MG, FREQUENCY: 1/DAY
  3. CALCITRIOL [Concomitant]
     Active Substance: CALCITRIOL
     Indication: Hypoparathyroidism
     Dosage: DOSE: 0.5, UNIT: MCG, FREQUENCY: 1/DAY
  4. DEXILANT [Concomitant]
     Active Substance: DEXLANSOPRAZOLE
     Indication: Acquired oesophageal web
     Dosage: DOSE: 60, UNIT: MG, FREQUENCY: 1/DAY
  5. DULOXETINE [Concomitant]
     Active Substance: DULOXETINE
     Indication: Depression
     Dosage: DOSE: 60, UNIT: MG, FREQUENCY: 1/DAY
  6. ESCITALOPRAM [Concomitant]
     Active Substance: ESCITALOPRAM OXALATE
     Indication: Depression
     Dosage: DOSE: 10, UNIT: MG, FREQUENCY: 1/DAY
  7. LEVOTHYROXINE [Concomitant]
     Active Substance: LEVOTHYROXINE
     Indication: Hypoparathyroidism
     Dosage: DOSE: 75, UNIT: MCG, FREQUENCY: 1/DAY
  8. TIZANIDINE [Concomitant]
     Active Substance: TIZANIDINE
     Indication: Muscle spasms
     Dosage: DOSE: 4, UNIT: MG, FREQUENCY: /DAY

REACTIONS (2)
  - Knee operation [Recovering/Resolving]
  - Off label use [Unknown]

NARRATIVE: CASE EVENT DATE: 20240601
